FAERS Safety Report 6590668-6 (Version None)
Quarter: 2010Q1

REPORT INFORMATION
  Report Type: 
  Country: None (occurrence: None)
  Receive Date: 20100219
  Receipt Date: 20100212
  Transmission Date: 20100710
  Serious: Yes (Death, Other)
  Sender: FDA-Public Use
  Company Number: B0611739A

PATIENT
  Sex: Female
  Weight: 54 kg

DRUGS (8)
  1. ROSIGLITAZONE [Suspect]
     Route: 048
     Dates: start: 20011004, end: 20081005
  2. METFORMIN [Suspect]
     Dosage: 1000MG TWICE PER DAY
     Route: 048
     Dates: start: 20081006, end: 20091118
  3. DIAPREL [Suspect]
     Dosage: 60MG PER DAY
     Route: 048
     Dates: start: 20051006, end: 20091119
  4. NOVOMIX [Concomitant]
     Dosage: 36IU TWICE PER DAY
     Route: 058
     Dates: start: 20091120
  5. PRESTARIUM [Concomitant]
     Indication: HYPERTENSION
     Dosage: 5MG PER DAY
     Route: 048
     Dates: start: 20091124
  6. AMLODIPINE [Concomitant]
     Indication: HYPERTENSION
     Dosage: 5MG PER DAY
     Route: 048
     Dates: start: 20091118
  7. CLEXANE [Concomitant]
     Dosage: 60MG PER DAY
     Route: 058
     Dates: start: 20091124
  8. CIPRONEX [Concomitant]
     Indication: CHOLANGITIS
     Dosage: 1000MG TWICE PER DAY
     Route: 048
     Dates: start: 20091124

REACTIONS (3)
  - ADRENAL NEOPLASM [None]
  - BILIARY NEOPLASM [None]
  - JAUNDICE [None]
